FAERS Safety Report 4653653-7 (Version None)
Quarter: 2005Q2

REPORT INFORMATION
  Report Type: 
  Country: None (occurrence: None)
  Receive Date: 20050505
  Receipt Date: 20050420
  Transmission Date: 20051028
  Serious: Yes (Other)
  Sender: FDA-Public Use
  Company Number: JP-JNJFOC-20050405866

PATIENT
  Age: 71 Year
  Sex: Male

DRUGS (9)
  1. ITRIZOLE [Suspect]
     Indication: ONYCHOMYCOSIS
     Route: 049
  2. GLIBENCLAMIDE [Concomitant]
  3. FELODIPINE [Concomitant]
  4. EPERISONE HYDROCHLORIDE [Concomitant]
  5. PIOGLITAZONE HYDROCHLORIDE [Concomitant]
  6. DIMETICONE [Concomitant]
  7. SANACTASE COMBINED DRUG [Concomitant]
  8. LOXOPROFEN SODIUM [Concomitant]
  9. HYDROXYZINE HYDROCHLORIDE [Concomitant]

REACTIONS (4)
  - BLOOD GLUCOSE INCREASED [None]
  - BLOOD PRESSURE INCREASED [None]
  - OEDEMA [None]
  - SUPRAVENTRICULAR EXTRASYSTOLES [None]
